FAERS Safety Report 13496774 (Version 3)
Quarter: 2017Q3

REPORT INFORMATION
  Report Type: Spontaneous
  Country: US (occurrence: US)
  Receive Date: 20170428
  Receipt Date: 20170803
  Transmission Date: 20171127
  Serious: Yes (Life-Threatening, Hospitalization, Other)
  Sender: FDA-Public Use
  Company Number: US-009507513-1704USA014409

PATIENT
  Age: 70 Year
  Sex: Female
  Weight: 81 kg

DRUGS (10)
  1. PLAVIX [Concomitant]
     Active Substance: CLOPIDOGREL BISULFATE
     Dosage: 75 MG, DAILY
     Route: 048
  2. ONDANSETRON [Concomitant]
     Active Substance: ONDANSETRON
     Indication: NAUSEA
     Dosage: 1 TABLET (8 MG), EVERY 8 HOURS AS NEEDED
     Route: 048
  3. KEYTRUDA [Suspect]
     Active Substance: PEMBROLIZUMAB
     Indication: LUNG CANCER METASTATIC
     Dosage: 200 MG, EVERY THREE WEEKS
     Route: 042
     Dates: start: 20161221, end: 20170201
  4. VITAMIN D [Concomitant]
     Active Substance: CHOLECALCIFEROL
     Dosage: 1 DF, QD
     Route: 048
  5. ATORVASTATIN [Concomitant]
     Active Substance: ATORVASTATIN
     Dosage: 20 MG, QD
     Route: 048
  6. BIOTIN [Concomitant]
     Active Substance: BIOTIN
     Dosage: UNKNOWN
     Route: 048
  7. CALCIUM POLYCARBOPHIL. [Concomitant]
     Active Substance: CALCIUM POLYCARBOPHIL
     Route: 048
  8. FOLIC ACID. [Concomitant]
     Active Substance: FOLIC ACID
     Dosage: 1 DF, QD
     Route: 048
  9. MINERALS (UNSPECIFIED) (+) VITAMINS (UNSPECIFIED) [Concomitant]
     Route: 048
  10. FEXOFENADINE HYDROCHLORIDE. [Concomitant]
     Active Substance: FEXOFENADINE HYDROCHLORIDE
     Indication: DRUG HYPERSENSITIVITY
     Dosage: 1 DF, AT BED TIME AS NEEDED
     Route: 048

REACTIONS (3)
  - Hypotension [Not Recovered/Not Resolved]
  - Retroperitoneal haemorrhage [Not Recovered/Not Resolved]
  - Metastases to adrenals [Not Recovered/Not Resolved]

NARRATIVE: CASE EVENT DATE: 20170309
